FAERS Safety Report 16557447 (Version 1)
Quarter: 2019Q3

REPORT INFORMATION
  Report Type: Report from Study
  Country: US (occurrence: US)
  Receive Date: 20190711
  Receipt Date: 20190711
  Transmission Date: 20191004
  Serious: Yes (Hospitalization)
  Sender: FDA-Public Use
  Company Number: US-PFIZER INC-2019289865

PATIENT
  Age: 72 Year
  Sex: Female

DRUGS (1)
  1. IBRANCE [Suspect]
     Active Substance: PALBOCICLIB
     Indication: BREAST CANCER FEMALE
     Dosage: 125 MG, CYCLIC (DAILY ON DAYS 1-21 OF 28 DAY)
     Route: 048
     Dates: start: 201906, end: 20190611

REACTIONS (4)
  - Blood sodium decreased [Unknown]
  - Upper limb fracture [Unknown]
  - Diarrhoea [Unknown]
  - Fall [Unknown]

NARRATIVE: CASE EVENT DATE: 201906
